FAERS Safety Report 19401157 (Version 1)
Quarter: 2021Q2

REPORT INFORMATION
  Report Type: Report from Study
  Country: None (occurrence: US)
  Receive Date: 20210611
  Receipt Date: 20210611
  Transmission Date: 20210717
  Serious: Yes (Other)
  Sender: FDA-Public Use
  Company Number: US-ABBVIE-21K-163-3941812-00

PATIENT
  Sex: Male

DRUGS (1)
  1. HUMIRA [Suspect]
     Active Substance: ADALIMUMAB
     Indication: RHEUMATOID ARTHRITIS
     Route: 058

REACTIONS (6)
  - Throat cancer [Recovered/Resolved]
  - Deafness unilateral [Unknown]
  - Optic ischaemic neuropathy [Unknown]
  - Rheumatoid arthritis [Not Recovered/Not Resolved]
  - Scar [Unknown]
  - Injection site papule [Recovered/Resolved]
